FAERS Safety Report 6059173-X (Version None)
Quarter: 2009Q1

REPORT INFORMATION
  Report Type: 
  Country: None (occurrence: None)
  Receive Date: 20090127
  Receipt Date: 20090127
  Transmission Date: 20090719
  Serious: Yes (Other)
  Sender: FDA-Public Use
  Company Number: None

PATIENT
  Sex: Male
  Weight: 82.4 kg

DRUGS (2)
  1. ENBREL [Suspect]
     Indication: INCLUSION BODY MYOSITIS
     Dosage: 25MG/PER INJECTION X'S 2  WEEKLY SQ
     Route: 058
     Dates: start: 20080819, end: 20090121
  2. ENBREL [Suspect]

REACTIONS (1)
  - SQUAMOUS CELL CARCINOMA OF SKIN [None]
